FAERS Safety Report 10132848 (Version 1)
Quarter: 2014Q2

REPORT INFORMATION
  Report Type: Spontaneous
  Country: JP (occurrence: JP)
  Receive Date: 20140428
  Receipt Date: 20140428
  Transmission Date: 20141212
  Serious: Yes (Other)
  Sender: FDA-Public Use
  Company Number: JP-PFIZER INC-2014115397

PATIENT
  Age: 84 Year
  Sex: Male

DRUGS (1)
  1. PREGABALIN [Suspect]
     Dosage: UNK
     Route: 048

REACTIONS (4)
  - Clavicle fracture [Unknown]
  - Femur fracture [Unknown]
  - Dizziness [Unknown]
  - Fall [Unknown]
